FAERS Safety Report 4886234-0 (Version None)
Quarter: 2006Q1

REPORT INFORMATION
  Report Type: 
  Country: None (occurrence: None)
  Receive Date: 20060120
  Receipt Date: 20060110
  Transmission Date: 20060701
  Serious: Yes (Other)
  Sender: FDA-Public Use
  Company Number: PHBS2006US00715

PATIENT
  Age: 47 Year
  Sex: Male

DRUGS (4)
  1. FLUDARABINE [Concomitant]
     Dosage: 50MG/M2
  2. CYCLOPHOSPHAMIDE [Concomitant]
     Dosage: 120 MG/M2
  3. METHOTREXATE [Concomitant]
     Dosage: SHORT COURSE
  4. CYCLOSPORINE [Suspect]
     Indication: BONE MARROW TRANSPLANT

REACTIONS (6)
  - AUTOANTIBODY POSITIVE [None]
  - AUTOIMMUNE HEPATITIS [None]
  - GAMMA-GLUTAMYLTRANSFERASE INCREASED [None]
  - GRAFT VERSUS HOST DISEASE [None]
  - ORAL MUCOSAL DISORDER [None]
  - TRANSAMINASES INCREASED [None]
